FAERS Safety Report 9173382 (Version 2)
Quarter: 2013Q3

REPORT INFORMATION
  Report Type: Spontaneous
  Country: US (occurrence: US)
  Receive Date: 20130320
  Receipt Date: 20130826
  Transmission Date: 20140515
  Serious: Yes (Congenital Anomaly)
  Sender: FDA-Public Use
  Company Number: US-UCBSA-080967

PATIENT
  Age: 0 None
  Sex: Male
  Weight: 3.09 kg

DRUGS (7)
  1. KEPPRA [Suspect]
     Dosage: DOSE: 1250 MG (1000 MG TABLET + 250 MG TABLET) IN THE MORNING AND NIGHT
     Route: 064
     Dates: start: 201302
  2. GENERIC KEPPRA [Suspect]
     Route: 064
     Dates: start: 201106
  3. FOLIC ACID [Concomitant]
     Indication: HYPOVITAMINOSIS
     Route: 064
     Dates: start: 2011
  4. PRISTIQ [Concomitant]
     Indication: DEPRESSION
     Route: 064
     Dates: start: 1999
  5. LAMICTAL [Concomitant]
     Dosage: DOSE: 150 MG IN AM AND 100 MG IN PM
     Route: 064
     Dates: start: 2012
  6. ATIVAN [Concomitant]
     Route: 064
     Dates: start: 2011, end: 201302
  7. DEPAKOTE [Concomitant]
     Route: 064
     Dates: start: 2000, end: 2013

REACTIONS (6)
  - Convulsion [Unknown]
  - Foetal disorder [Unknown]
  - Foetal malformation [Unknown]
  - Oxygen saturation decreased [Unknown]
  - Premature baby [Unknown]
  - Foetal exposure during pregnancy [Recovered/Resolved]
